FAERS Safety Report 7346734-0 (Version None)
Quarter: 2011Q1

REPORT INFORMATION
  Report Type: 
  Country: None (occurrence: None)
  Receive Date: 20110311
  Receipt Date: 20110304
  Transmission Date: 20110831
  Serious: Yes (Other)
  Sender: FDA-Public Use
  Company Number: GB-BRISTOL-MYERS SQUIBB COMPANY-15591704

PATIENT

DRUGS (1)
  1. ATAZANAVIR [Suspect]

REACTIONS (2)
  - SYNCOPE [None]
  - ARRHYTHMIA [None]
